FAERS Safety Report 5635144-X (Version None)
Quarter: 2008Q1

REPORT INFORMATION
  Report Type: 
  Country: None (occurrence: None)
  Receive Date: 20080221
  Receipt Date: 20080221
  Transmission Date: 20080703
  Serious: Yes (Hospitalization)
  Sender: FDA-Public Use
  Company Number: None

PATIENT
  Sex: Male
  Weight: 70 kg

DRUGS (1)
  1. FLUOROURACIL [Suspect]
     Dosage: 9000 MG

REACTIONS (2)
  - DEEP VEIN THROMBOSIS [None]
  - LOBAR PNEUMONIA [None]
